FAERS Safety Report 6057936-8 (Version None)
Quarter: 2009Q1

REPORT INFORMATION
  Report Type: 
  Country: None (occurrence: None)
  Receive Date: 20090129
  Receipt Date: 20090125
  Transmission Date: 20090719
  Serious: No
  Sender: FDA-Public Use
  Company Number: US-B.I. PHARMACEUTICALS,INC./RIDGEFIELD-2009-BP-00945BP

PATIENT
  Age: 65 Year
  Sex: Male

DRUGS (5)
  1. ZANTAC 150 [Suspect]
     Indication: PROPHYLAXIS AGAINST GASTROINTESTINAL ULCER
     Dosage: 150MG
     Route: 048
     Dates: start: 20090125
  2. ZANTAC 150 [Suspect]
     Indication: GASTRIC PH INCREASED
  3. SINGULAIR [Concomitant]
     Indication: ASTHMA
  4. LISINOPRIL [Concomitant]
     Indication: UNEVALUABLE EVENT
  5. INSULIN PUMP [Concomitant]
     Indication: DIABETES MELLITUS

REACTIONS (1)
  - THROAT TIGHTNESS [None]
